FAERS Safety Report 9717483 (Version 1)
Quarter: 2013Q4

REPORT INFORMATION
  Report Type: Spontaneous
  Country: US (occurrence: US)
  Receive Date: 20131127
  Receipt Date: 20131127
  Transmission Date: 20140711
  Serious: No
  Sender: FDA-Public Use
  Company Number: US-GILEAD-2009-0019786

PATIENT
  Age: 57 Year
  Sex: Female

DRUGS (11)
  1. LETAIRIS [Suspect]
     Indication: PULMONARY ARTERIAL HYPERTENSION
     Route: 048
     Dates: start: 20070821
  2. SILDENAFIL [Concomitant]
     Indication: PULMONARY ARTERIAL HYPERTENSION
     Route: 048
  3. ALDACTONE [Concomitant]
  4. LANOXIN [Concomitant]
  5. PREDNISONE [Concomitant]
  6. FLONASE [Concomitant]
  7. TESSALON PERLES [Concomitant]
  8. XANAX [Concomitant]
  9. RESTORIL [Concomitant]
  10. FLEXERIL [Concomitant]
  11. NEXIUM [Concomitant]

REACTIONS (3)
  - Chest pain [Unknown]
  - Musculoskeletal pain [Unknown]
  - Sinusitis [Unknown]
